FAERS Safety Report 24368108 (Version 2)
Quarter: 2024Q4

REPORT INFORMATION
  Report Type: Spontaneous
  Country: US (occurrence: US)
  Receive Date: 20240926
  Receipt Date: 20241127
  Transmission Date: 20250114
  Serious: Yes (Hospitalization, Other)
  Sender: MERCK
  Company Number: US-009507513-2409USA007872

PATIENT
  Sex: Male
  Weight: 83.4 kg

DRUGS (46)
  1. KEYTRUDA [Suspect]
     Active Substance: PEMBROLIZUMAB
     Indication: Non-small cell lung cancer metastatic
     Dosage: UNK
  2. ZIMBERELIMAB [Suspect]
     Active Substance: ZIMBERELIMAB
     Indication: Non-small cell lung cancer metastatic
     Dosage: 360 MILLIGRAM
     Route: 042
     Dates: start: 20231103, end: 20231103
  3. ZIMBERELIMAB [Suspect]
     Active Substance: ZIMBERELIMAB
     Dosage: 360 MILLIGRAM
     Route: 042
     Dates: start: 20231127, end: 20231127
  4. ZIMBERELIMAB [Suspect]
     Active Substance: ZIMBERELIMAB
     Dosage: 360 MILLIGRAM
     Route: 042
     Dates: start: 20231215, end: 20231215
  5. ZIMBERELIMAB [Suspect]
     Active Substance: ZIMBERELIMAB
     Dosage: 360 MILLIGRAM
     Route: 042
     Dates: start: 20240105, end: 20240105
  6. ZIMBERELIMAB [Suspect]
     Active Substance: ZIMBERELIMAB
     Dosage: 360 MILLIGRAM
     Route: 042
     Dates: start: 20240126, end: 20240126
  7. ZIMBERELIMAB [Suspect]
     Active Substance: ZIMBERELIMAB
     Dosage: 360 MILLIGRAM
     Route: 042
     Dates: start: 20240216, end: 20240216
  8. ZIMBERELIMAB [Suspect]
     Active Substance: ZIMBERELIMAB
     Dosage: 360 MILLIGRAM
     Route: 042
     Dates: start: 20240308, end: 20240308
  9. ZIMBERELIMAB [Suspect]
     Active Substance: ZIMBERELIMAB
     Dosage: 360 MILLIGRAM
     Route: 042
     Dates: start: 20240329, end: 20240329
  10. ZIMBERELIMAB [Suspect]
     Active Substance: ZIMBERELIMAB
     Dosage: 360 MILLIGRAM
     Route: 042
     Dates: start: 20240419, end: 20240419
  11. ZIMBERELIMAB [Suspect]
     Active Substance: ZIMBERELIMAB
     Dosage: 360 MILLIGRAM
     Route: 042
     Dates: start: 20240510, end: 20240510
  12. ZIMBERELIMAB [Suspect]
     Active Substance: ZIMBERELIMAB
     Dosage: 360 MILLIGRAM
     Route: 042
     Dates: start: 20240510, end: 20240510
  13. CARBOPLATIN [Suspect]
     Active Substance: CARBOPLATIN
     Indication: Non-small cell lung cancer metastatic
     Dosage: 680 MILLIGRAM
     Route: 042
     Dates: start: 20231103, end: 20231103
  14. CARBOPLATIN [Suspect]
     Active Substance: CARBOPLATIN
     Dosage: 610 MILLIGRAM
     Route: 042
     Dates: start: 20231127, end: 20231127
  15. CARBOPLATIN [Suspect]
     Active Substance: CARBOPLATIN
     Dosage: 610 MILLIGRAM
     Route: 042
     Dates: start: 20231215, end: 20231215
  16. CARBOPLATIN [Suspect]
     Active Substance: CARBOPLATIN
     Dosage: 672.3 MILLIGRAM
     Route: 042
     Dates: start: 20240105, end: 20240105
  17. PEMETREXED [Suspect]
     Active Substance: PEMETREXED
     Indication: Non-small cell lung cancer metastatic
     Dosage: 1025 MILLIGRAM
     Route: 042
     Dates: start: 20231103, end: 20231103
  18. PEMETREXED [Suspect]
     Active Substance: PEMETREXED
     Dosage: 1025 MILLIGRAM
     Route: 042
     Dates: start: 20231127, end: 20231127
  19. PEMETREXED [Suspect]
     Active Substance: PEMETREXED
     Dosage: 1025 MILLIGRAM
     Route: 042
     Dates: start: 20231215, end: 20231215
  20. PEMETREXED [Suspect]
     Active Substance: PEMETREXED
     Dosage: 500 MILLIGRAM
     Route: 042
     Dates: start: 20240105, end: 20240105
  21. PEMETREXED [Suspect]
     Active Substance: PEMETREXED
     Dosage: 500 MILLIGRAM
     Route: 042
     Dates: start: 20240126, end: 20240126
  22. PEMETREXED [Suspect]
     Active Substance: PEMETREXED
     Dosage: 500 MILLIGRAM
     Route: 042
     Dates: start: 20240216, end: 20240216
  23. PEMETREXED [Suspect]
     Active Substance: PEMETREXED
     Dosage: 500 MILLIGRAM
     Route: 042
     Dates: start: 20240216, end: 20240216
  24. PEMETREXED [Suspect]
     Active Substance: PEMETREXED
     Dosage: 500 MILLIGRAM
     Route: 042
     Dates: start: 20240308, end: 20240308
  25. PEMETREXED [Suspect]
     Active Substance: PEMETREXED
     Dosage: 500 MILLIGRAM
     Route: 042
     Dates: start: 20240329, end: 20240329
  26. PEMETREXED [Suspect]
     Active Substance: PEMETREXED
     Dosage: 500 MILLIGRAM
     Route: 042
     Dates: start: 20240419, end: 20240419
  27. PEMETREXED [Suspect]
     Active Substance: PEMETREXED
     Dosage: 500 MILLIGRAM
     Route: 042
     Dates: start: 20240510, end: 20240510
  28. RAMUCIRUMAB [Suspect]
     Active Substance: RAMUCIRUMAB
     Indication: Non-small cell lung cancer metastatic
     Dosage: 1200 MILLIGRAM
     Dates: start: 20231103, end: 20231103
  29. ATORVASTATIN [Concomitant]
     Active Substance: ATORVASTATIN
     Dosage: UNK
     Dates: start: 1998
  30. FAMOTIDINE [Concomitant]
     Active Substance: FAMOTIDINE
     Dosage: UNK
     Dates: start: 1998
  31. HYDROCHLOROTHIAZIDE [Concomitant]
     Active Substance: HYDROCHLOROTHIAZIDE
     Dosage: UNK
     Dates: start: 1998
  32. METOPROLOL [Concomitant]
     Active Substance: METOPROLOL
     Dosage: UNK
     Dates: start: 1998
  33. METOPROLOL [Concomitant]
     Active Substance: METOPROLOL
     Dosage: UNK
  34. OMEPRAZOLE [Concomitant]
     Active Substance: OMEPRAZOLE
     Dosage: UNK
     Dates: start: 1998
  35. SPIRONOLACTONE [Concomitant]
     Active Substance: SPIRONOLACTONE
     Dosage: UNK
     Dates: start: 1998
  36. DIAZEPAM [Concomitant]
     Active Substance: DIAZEPAM
     Dosage: UNK
     Dates: start: 2003
  37. FLUTICASONE [Concomitant]
     Active Substance: FLUTICASONE
     Dosage: UNK
     Dates: start: 20231020
  38. TRAMADOL [Concomitant]
     Active Substance: TRAMADOL
     Dosage: UNK
     Dates: start: 20240129
  39. IBUPROFEN [Concomitant]
     Active Substance: IBUPROFEN
     Dosage: UNK
     Dates: start: 20240130
  40. APIXABAN [Concomitant]
     Active Substance: APIXABAN
     Dosage: UNK
     Dates: start: 20240428
  41. ONDANSETRON [Concomitant]
     Active Substance: ONDANSETRON
     Dosage: UNK
     Dates: start: 20240512
  42. HYDRALAZINE [Concomitant]
     Active Substance: HYDRALAZINE HYDROCHLORIDE
  43. POTASSIUM CHLORIDE [Concomitant]
     Active Substance: POTASSIUM CHLORIDE
     Dosage: UNK
     Dates: start: 20240611, end: 20240615
  44. METOPROLOL SUCCINATE [Concomitant]
     Active Substance: METOPROLOL SUCCINATE
  45. DULCOLAX (BISACODYL) [Concomitant]
     Active Substance: BISACODYL
     Dosage: UNK
     Dates: start: 2024
  46. SENOKOT-S [Concomitant]
     Active Substance: DOCUSATE SODIUM\SENNOSIDES
     Dosage: UNK
     Dates: start: 20240610

REACTIONS (1)
  - Encephalopathy [Recovered/Resolved]

NARRATIVE: CASE EVENT DATE: 20240625
